FAERS Safety Report 4299307-0 (Version None)
Quarter: 2004Q1

REPORT INFORMATION
  Report Type: 
  Country: None (occurrence: None)
  Receive Date: 20040217
  Receipt Date: 20040203
  Transmission Date: 20041129
  Serious: Yes (Hospitalization)
  Sender: FDA-Public Use
  Company Number: CERZ-10507

PATIENT
  Age: 53 Year
  Sex: Female
  Weight: 67.586 kg

DRUGS (1)
  1. CEREZYME [Suspect]
     Indication: GAUCHER'S DISEASE
     Dosage: 4000 UNITS Q2WKS IV
     Route: 042
     Dates: start: 20010501

REACTIONS (6)
  - AMMONIA INCREASED [None]
  - ANXIETY [None]
  - CONFUSIONAL STATE [None]
  - DIARRHOEA HAEMORRHAGIC [None]
  - DYSPNOEA [None]
  - PORTAL HYPERTENSION [None]
